FAERS Safety Report 5116647-3 (Version None)
Quarter: 2006Q3

REPORT INFORMATION
  Report Type: 
  Country: None (occurrence: None)
  Receive Date: 20060928
  Receipt Date: 20060922
  Transmission Date: 20061208
  Serious: Yes (Other)
  Sender: FDA-Public Use
  Company Number: BR-GLAXOSMITHKLINE-A0621657A

PATIENT
  Age: 33 Year
  Sex: Female
  Weight: 73 kg

DRUGS (4)
  1. STELAZINE [Suspect]
     Indication: INSOMNIA
     Dosage: 5MG PER DAY
     Route: 048
     Dates: start: 20060807
  2. SETRALINE HCL [Concomitant]
     Route: 048
     Dates: start: 20060201
  3. CLOXAZOLAM [Concomitant]
     Dosage: 2TAB PER DAY
     Route: 048
     Dates: start: 20060401
  4. CARBAMAZEPINE [Concomitant]
     Dosage: 4TAB PER DAY
     Route: 048
     Dates: start: 20060401

REACTIONS (1)
  - FACIAL PALSY [None]
